FAERS Safety Report 4816175-6 (Version None)
Quarter: 2005Q4

REPORT INFORMATION
  Report Type: 
  Country: None (occurrence: None)
  Receive Date: 20051026
  Receipt Date: 20051010
  Transmission Date: 20060501
  Serious: Yes (Other)
  Sender: FDA-Public Use
  Company Number: EWC050342903

PATIENT
  Age: 33 Year
  Sex: Female
  Weight: 89 kg

DRUGS (4)
  1. OLANZAPINE [Suspect]
     Indication: PSYCHOTIC DISORDER
     Dosage: 7.5 MG DAY
     Dates: start: 20040320
  2. AMITRIPTYLINE HCL [Concomitant]
  3. GYNO-TARDYFERON [Concomitant]
  4. MAGNESIOCARD (MAGNESIUM ASPARTATE HYDROCHLORIDE) [Concomitant]

REACTIONS (7)
  - ALBUMINURIA [None]
  - ANAEMIA [None]
  - BLOOD URIC ACID INCREASED [None]
  - CAESAREAN SECTION [None]
  - DRUG EXPOSURE DURING PREGNANCY [None]
  - OEDEMA PERIPHERAL [None]
  - PRE-ECLAMPSIA [None]
